FAERS Safety Report 11337380 (Version 1)
Quarter: 2015Q3

REPORT INFORMATION
  Report Type: Spontaneous
  Country: US (occurrence: US)
  Receive Date: 20150803
  Receipt Date: 20150803
  Transmission Date: 20151125
  Serious: Yes (Other)
  Sender: FDA-Public Use
  Company Number: US-ELI_LILLY_AND_COMPANY-US200906002161

PATIENT
  Age: 45 Year
  Sex: Female

DRUGS (2)
  1. SSRI [Concomitant]
     Active Substance: UNSPECIFIED INGREDIENT
  2. ZYPREXA [Suspect]
     Active Substance: OLANZAPINE
     Indication: BIPOLAR I DISORDER
     Dosage: 10 MG, UNK
     Dates: start: 200705, end: 200805

REACTIONS (2)
  - Weight increased [Recovering/Resolving]
  - Diabetes mellitus [Recovered/Resolved]

NARRATIVE: CASE EVENT DATE: 200705
